FAERS Safety Report 9384418 (Version 3)
Quarter: 2013Q3

REPORT INFORMATION
  Report Type: Report from Study
  Country: US (occurrence: US)
  Receive Date: 20130705
  Receipt Date: 20130925
  Transmission Date: 20140515
  Serious: Yes (Hospitalization)
  Sender: FDA-Public Use
  Company Number: PHEH2013US014308

PATIENT
  Age: 46 Year
  Sex: Female

DRUGS (15)
  1. TASIGNA [Suspect]
     Indication: CHRONIC MYELOID LEUKAEMIA
     Dosage: 300 MG, BID
     Route: 048
     Dates: start: 20130301, end: 201304
  2. TASIGNA [Suspect]
     Dosage: 1/2 DOSE INCREASED TO FULL DOSE
     Dates: start: 20130411
  3. ADVAIR DISKUS [Concomitant]
     Dosage: 1 PUFF BY INHALATION
  4. ALBUTEROL SULFATE [Concomitant]
     Dosage: 2 INHALATIONS AS DIRECTED
  5. IBUPROFEN [Concomitant]
     Indication: PAIN
     Dosage: 600 MG, Q8H
  6. LASIX [Concomitant]
     Dosage: 20 MG, BID
     Route: 048
  7. LEVAQUIN [Concomitant]
     Dosage: 500 MG, DAILY
  8. MAGIC MOUTHWASH [Concomitant]
     Dosage: 15 ML, UNK
  9. POTASSIUM CHLORIDE [Concomitant]
     Dosage: 20 MG, BID
  10. PREDNISONE [Concomitant]
     Dosage: 20 MG, UNK
  11. PHENERGAN//PROMETHAZINE HYDROCHLORIDE [Concomitant]
     Dosage: 0.5 MG, Q4H
  12. TESSALON [Concomitant]
     Dosage: 100 MG, TID
  13. XANAX [Concomitant]
     Dosage: 0.25 MG, TID
  14. ZOFRAN [Concomitant]
     Indication: NAUSEA
     Dosage: 8 MG, 8QH
  15. LOSARLAN [Concomitant]
     Dosage: 50 MG, DAILY

REACTIONS (6)
  - Menstrual disorder [Recovering/Resolving]
  - Menorrhagia [Recovering/Resolving]
  - Toxicity to various agents [Recovering/Resolving]
  - Oedema [Unknown]
  - Headache [Unknown]
  - Dyspnoea [Unknown]
